FAERS Safety Report 11221991 (Version 1)
Quarter: 2015Q2

REPORT INFORMATION
  Report Type: Spontaneous
  Country: IN (occurrence: IN)
  Receive Date: 20150626
  Receipt Date: 20150626
  Transmission Date: 20150821
  Serious: Yes (Hospitalization)
  Sender: FDA-Public Use
  Company Number: IN-SA-2015SA091189

PATIENT
  Age: 12 Month
  Sex: Female

DRUGS (1)
  1. NALIDIXIC ACID [Suspect]
     Active Substance: NALIDIXIC ACID
     Indication: DIARRHOEA
     Route: 065

REACTIONS (7)
  - Staring [Recovered/Resolved]
  - Benign intracranial hypertension [Recovered/Resolved]
  - Fontanelle bulging [Recovered/Resolved]
  - Irritability [Recovered/Resolved]
  - Bradycardia [Recovered/Resolved]
  - Somnolence [Recovered/Resolved]
  - Hypertension [Recovered/Resolved]
